FAERS Safety Report 6446340-6 (Version None)
Quarter: 2009Q4

REPORT INFORMATION
  Report Type: 
  Country: None (occurrence: None)
  Receive Date: 20091119
  Receipt Date: 20091112
  Transmission Date: 20100525
  Serious: Yes (Other)
  Sender: FDA-Public Use
  Company Number: US-AMGEN-QUU374302

PATIENT
  Sex: Female

DRUGS (2)
  1. ARANESP [Suspect]
     Indication: CHEMOTHERAPY
     Dates: start: 20090731, end: 20091104
  2. UNSPECIFIED ANTINEOPLASTIC AGENT [Concomitant]

REACTIONS (2)
  - ANAEMIA [None]
  - THERAPEUTIC RESPONSE DECREASED [None]
